FAERS Safety Report 6868376-3 (Version None)
Quarter: 2010Q3

REPORT INFORMATION
  Report Type: 
  Country: None (occurrence: None)
  Receive Date: 20100722
  Receipt Date: 20080702
  Transmission Date: 20110219
  Serious: Yes (Other)
  Sender: FDA-Public Use
  Company Number: US-PFIZER INC-2008043221

PATIENT
  Sex: Female
  Weight: 58.5 kg

DRUGS (2)
  1. CHANTIX [Suspect]
     Indication: SMOKING CESSATION THERAPY
     Dates: start: 20080401
  2. ALL OTHER THERAPEUTIC PRODUCTS [Concomitant]

REACTIONS (6)
  - BLISTER [None]
  - CHILLS [None]
  - NAUSEA [None]
  - PRURITUS GENERALISED [None]
  - RASH [None]
  - URTICARIA [None]
